FAERS Safety Report 8270432 (Version 4)
Quarter: 2014Q2

REPORT INFORMATION
  Report Type: Spontaneous
  Country: US (occurrence: US)
  Receive Date: 20111201
  Receipt Date: 20140602
  Transmission Date: 20141212
  Serious: Yes (Death, Other)
  Sender: FDA-Public Use
  Company Number: US-BAYER-2011-112497

PATIENT
  Age: 32 Year
  Sex: Female
  Weight: 38.55 kg

DRUGS (12)
  1. YAZ [Suspect]
     Indication: ACNE
     Dosage: 200 MG, UNK
     Route: 048
     Dates: start: 20060913, end: 20080110
  2. YAZ [Suspect]
     Indication: CONTRACEPTION
  3. YASMIN [Suspect]
     Indication: ACNE
     Dosage: UNK
     Route: 048
     Dates: start: 20060913, end: 20080110
  4. YASMIN [Suspect]
     Indication: CONTRACEPTION
  5. ACYCLOVIR [ACICLOVIR] [Concomitant]
     Dosage: 200 MG, UNK
  6. FLUCONAZOLE [Concomitant]
     Dosage: 150 MG, UNK
     Dates: start: 20070116
  7. TRAMADOL HYDROCHLORIDE [Concomitant]
     Dosage: 50 MG, UNK
  8. PROPOXYPHENE NAPSYLATE W/ACETAMINOPHENE [Concomitant]
     Dosage: 100-650
     Dates: start: 20070216
  9. ZOVIRAX [Concomitant]
     Indication: HERPES SIMPLEX
     Dosage: 200 MG, UNK
     Dates: start: 20061219
  10. ZOVIRAX [Concomitant]
     Indication: HERPES SIMPLEX
     Dosage: 400 MG, UNK
     Dates: start: 20070116
  11. FLEET PHOSPHO-SODA [Concomitant]
     Indication: CONSTIPATION
     Dosage: [TIMES] 2
     Dates: start: 20070213
  12. ULTRAM [Concomitant]
     Indication: PAIN
     Dosage: UNK
     Dates: start: 20070215

REACTIONS (4)
  - Cholelithiasis [None]
  - Mental disorder [None]
  - Cholecystitis acute [None]
  - Breast cancer metastatic [Fatal]
